FAERS Safety Report 7907469-6 (Version None)
Quarter: 2011Q4

REPORT INFORMATION
  Report Type: 
  Country: None (occurrence: None)
  Receive Date: 20111109
  Receipt Date: 20111031
  Transmission Date: 20120403
  Serious: Yes (Hospitalization, Other)
  Sender: FDA-Public Use
  Company Number: 2011MA016004

PATIENT
  Age: 1 Year
  Sex: Female

DRUGS (10)
  1. VALPROATE SODIUM [Suspect]
     Indication: SEIZURE CLUSTER
  2. CLOBAZAM (CLOBAZAM) [Suspect]
     Indication: SEIZURE CLUSTER
  3. LAMOTRIGINE [Suspect]
     Indication: SEIZURE CLUSTER
  4. CARBAMAZEPINE [Suspect]
     Indication: SEIZURE CLUSTER
  5. DIAZEPAM [Suspect]
     Indication: SEIZURE CLUSTER
  6. PHENOBARBITAL TAB [Suspect]
     Indication: SEIZURE CLUSTER
  7. ZONISAMIDE [Suspect]
     Indication: SEIZURE CLUSTER
  8. PHENYTOIN [Suspect]
     Indication: SEIZURE CLUSTER
  9. POTASSIUM BROMIDE (POTASSIUM BROMIDE) [Suspect]
     Indication: SEIZURE CLUSTER
  10. MIDAZOLAM HCL [Suspect]
     Indication: SEIZURE CLUSTER

REACTIONS (11)
  - HYPOTONIA [None]
  - PARTIAL SEIZURES [None]
  - NO THERAPEUTIC RESPONSE [None]
  - PROTRUSION TONGUE [None]
  - FLUSHING [None]
  - CEREBRAL ATROPHY [None]
  - DISEASE RECURRENCE [None]
  - APNOEA [None]
  - EPILEPSY [None]
  - LACRIMATION INCREASED [None]
  - SINGLE PHOTON EMISSION COMPUTERISED TOMOGRAM ABNORMAL [None]
